FAERS Safety Report 16841577 (Version 1)
Quarter: 2019Q3

REPORT INFORMATION
  Report Type: Spontaneous
  Country: JP (occurrence: JP)
  Receive Date: 20190923
  Receipt Date: 20190923
  Transmission Date: 20191005
  Serious: Yes (Hospitalization, Other)
  Sender: FDA-Public Use
  Company Number: JP-GLAXOSMITHKLINE-JP2019JPN163967

PATIENT
  Age: 14 Year
  Sex: Male

DRUGS (1)
  1. RELENZA [Suspect]
     Active Substance: ZANAMIVIR
     Indication: INFLUENZA
     Dosage: UNK
     Route: 055

REACTIONS (9)
  - Limbic encephalitis [Recovering/Resolving]
  - Abnormal behaviour [Recovering/Resolving]
  - Communication disorder [Recovering/Resolving]
  - Speech disorder [Recovering/Resolving]
  - Disorganised speech [Recovering/Resolving]
  - Cognitive disorder [Recovering/Resolving]
  - Inappropriate affect [Recovering/Resolving]
  - Depressed level of consciousness [Recovering/Resolving]
  - Gastroenteritis Escherichia coli [Unknown]
